FAERS Safety Report 11856121 (Version 1)
Quarter: 2015Q4

REPORT INFORMATION
  Report Type: Spontaneous
  Country: US (occurrence: US)
  Receive Date: 20151221
  Receipt Date: 20151221
  Transmission Date: 20160305
  Serious: No
  Sender: FDA-Public Use
  Company Number: US-HOSPIRA-2700371

PATIENT
  Age: 88 Year
  Sex: Male
  Weight: 65.77 kg

DRUGS (6)
  1. DIGOXIN. [Concomitant]
     Active Substance: DIGOXIN
     Indication: ATRIAL FIBRILLATION
     Dosage: 0.125 MG, FOR YEARS
     Route: 048
  2. PREDNISONE. [Concomitant]
     Active Substance: PREDNISONE
     Indication: POLYMYALGIA RHEUMATICA
     Dosage: FOR YEARS
     Route: 048
  3. BUDESONIDE. [Concomitant]
     Active Substance: BUDESONIDE
     Indication: LUNG DISORDER
     Dosage: REGULARLY, FOR YEARS
     Route: 048
  4. PETHIDINE HYDROCHLORIDE [Suspect]
     Active Substance: MEPERIDINE
     Indication: MUSCULOSKELETAL DEFORMITY
     Dosage: AS NEEDED
     Route: 030
     Dates: start: 20140117
  5. RESTORIL                           /00393701/ [Concomitant]
     Indication: SLEEP DISORDER
     Dosage: 15-30 MG, AT BEDTIME, FOR YEARS
     Route: 048
  6. FUROSEMIDE. [Concomitant]
     Active Substance: FUROSEMIDE
     Indication: CARDIAC FAILURE CONGESTIVE
     Dosage: 40-80 MG, DEPENDS ON EDEMA, FOR YEARS
     Route: 048

REACTIONS (3)
  - Drug dose omission [Recovering/Resolving]
  - Product container issue [Recovering/Resolving]
  - Product closure removal difficult [Recovering/Resolving]

NARRATIVE: CASE EVENT DATE: 20140117
